FAERS Safety Report 15813829 (Version 1)
Quarter: 2019Q1

REPORT INFORMATION
  Report Type: Report from Study
  Country: SE (occurrence: SE)
  Receive Date: 20190111
  Receipt Date: 20190111
  Transmission Date: 20190417
  Serious: Yes (Death, Hospitalization)
  Sender: FDA-Public Use
  Company Number: SE-MYLANLABS-2019M1002296

PATIENT
  Sex: Male

DRUGS (2)
  1. BRIVUDINE [Interacting]
     Active Substance: BRIVUDINE
     Indication: HERPES ZOSTER
     Route: 065
  2. FLUOROURACIL. [Suspect]
     Active Substance: FLUOROURACIL
     Indication: COLON CANCER
     Route: 065

REACTIONS (3)
  - Mucosal inflammation [Fatal]
  - Drug interaction [Fatal]
  - Bone marrow failure [Fatal]
